FAERS Safety Report 20461154 (Version 1)
Quarter: 2022Q1

REPORT INFORMATION
  Report Type: Report from Study
  Country: US (occurrence: US)
  Receive Date: 20220211
  Receipt Date: 20220211
  Transmission Date: 20220423
  Serious: Yes (Death, Life-Threatening, Hospitalization, Other)
  Sender: FDA-Public Use
  Company Number: US-GILEAD-2021-0549887

PATIENT
  Age: 62 Year
  Sex: Male

DRUGS (53)
  1. INFLIXIMAB [Suspect]
     Active Substance: INFLIXIMAB
     Indication: COVID-19
     Dosage: UNK, ONCE
     Route: 042
     Dates: start: 20210830
  2. PLACEBO [Suspect]
     Active Substance: UNSPECIFIED INGREDIENT
     Indication: COVID-19
     Dosage: UNK, ONCE
     Route: 042
     Dates: start: 20210830
  3. REMDESIVIR [Suspect]
     Active Substance: REMDESIVIR
     Indication: COVID-19
     Dosage: UNK, QD
     Route: 042
     Dates: start: 20210830
  4. ASPIRIN [Concomitant]
     Active Substance: ASPIRIN
  5. ASCORBIC ACID [Concomitant]
     Active Substance: ASCORBIC ACID
  6. ATORVASTATIN [Concomitant]
     Active Substance: ATORVASTATIN
  7. BROMPHENIRAMINE;PHENYLEPHRINE [Concomitant]
  8. CALCIUM CHLORIDE\POTASSIUM CHLORIDE\SODIUM LACTATE [Concomitant]
     Active Substance: CALCIUM CHLORIDE\POTASSIUM CHLORIDE\SODIUM LACTATE
  9. CALCIUM PANTOTHENATE;VITAMINS NOS [Concomitant]
  10. CEFEPIME [Concomitant]
     Active Substance: CEFEPIME HYDROCHLORIDE
  11. CEFTRIAXONE [Concomitant]
     Active Substance: CEFTRIAXONE
  12. CLOPIDOGREL [Concomitant]
     Active Substance: CLOPIDOGREL BISULFATE
  13. COLCHICINE [Concomitant]
     Active Substance: COLCHICINE
  14. CHOLECALCIFEROL [Concomitant]
     Active Substance: CHOLECALCIFEROL
  15. DEXAMETHASONE [Concomitant]
     Active Substance: DEXAMETHASONE
  16. DEXMEDETOMIDINE [Concomitant]
     Active Substance: DEXMEDETOMIDINE
  17. DOCUSATE SODIUM [Concomitant]
     Active Substance: DOCUSATE SODIUM
  18. DOXYCYCLINE HYCLATE [Concomitant]
     Active Substance: DOXYCYCLINE HYCLATE
  19. ENOXAPARIN [Concomitant]
     Active Substance: ENOXAPARIN
  20. FAMOTIDINE [Concomitant]
     Active Substance: FAMOTIDINE
  21. FINASTERIDE [Concomitant]
     Active Substance: FINASTERIDE
  22. FUROSEMIDE [Concomitant]
     Active Substance: FUROSEMIDE
  23. GUAIFENESIN [Concomitant]
     Active Substance: GUAIFENESIN
  24. HALOPERIDOL LACTATE [Concomitant]
     Active Substance: HALOPERIDOL LACTATE
  25. HEPARIN SODIUM [Concomitant]
     Active Substance: HEPARIN SODIUM
  26. IBUPROFEN [Concomitant]
     Active Substance: IBUPROFEN
  27. INSULIN NOS [Concomitant]
     Active Substance: INSULIN NOS
  28. LIDOCAINE [Concomitant]
     Active Substance: LIDOCAINE
  29. LINEZOLID [Concomitant]
     Active Substance: LINEZOLID
  30. LISINOPRIL [Concomitant]
     Active Substance: LISINOPRIL
  31. POLYETHYLENE GLYCOL 3350 [Concomitant]
     Active Substance: POLYETHYLENE GLYCOL 3350
  32. MELATONIN [Concomitant]
     Active Substance: MELATONIN
  33. METHYLPREDNISOLONE SODIUM SUCCINATE [Concomitant]
     Active Substance: METHYLPREDNISOLONE SODIUM SUCCINATE
  34. METOPROLOL SUCCINATE;METOPROLOL TARTRATE [Concomitant]
  35. METOPROLOL TARTRATE [Concomitant]
     Active Substance: METOPROLOL TARTRATE
  36. MORPHINE SULFATE [Concomitant]
     Active Substance: MORPHINE SULFATE
  37. ACETAMINOPHEN [Concomitant]
     Active Substance: ACETAMINOPHEN
  38. PIPERACILLIN AND TAZOBACTAM [Concomitant]
     Active Substance: PIPERACILLIN SODIUM\TAZOBACTAM SODIUM
  39. PROTEIN [Concomitant]
     Active Substance: PROTEIN
  40. SODIUM CHLORIDE [Concomitant]
     Active Substance: SODIUM CHLORIDE
  41. THIAMINE [Concomitant]
     Active Substance: THIAMINE
  42. VANCOMYCIN [Concomitant]
     Active Substance: VANCOMYCIN
  43. CISATRACURIUM [Concomitant]
     Active Substance: CISATRACURIUM
  44. GLYCOPYRRONIUM [Concomitant]
     Active Substance: GLYCOPYRRONIUM
  45. MIDAZOLAM [Concomitant]
     Active Substance: MIDAZOLAM
  46. NOREPINEPHRINE [Concomitant]
     Active Substance: NOREPINEPHRINE
  47. PROPOFOL [Concomitant]
     Active Substance: PROPOFOL
  48. SENNOSIDES A AND B [Concomitant]
     Active Substance: SENNOSIDES A AND B
  49. SODIUM BICARBONATE [Concomitant]
     Active Substance: SODIUM BICARBONATE
  50. SODIUM ZIRCONIUM CYCLOSILICATE [Concomitant]
     Active Substance: SODIUM ZIRCONIUM CYCLOSILICATE
  51. SULFAMETHOXAZOLE\TRIMETHOPRIM [Concomitant]
     Active Substance: SULFAMETHOXAZOLE\TRIMETHOPRIM
  52. TAMSULOSIN [Concomitant]
     Active Substance: TAMSULOSIN
  53. FENTANYL [Concomitant]
     Active Substance: FENTANYL

REACTIONS (3)
  - Sepsis [Not Recovered/Not Resolved]
  - Respiratory failure [Fatal]
  - Septic shock [Not Recovered/Not Resolved]

NARRATIVE: CASE EVENT DATE: 20210917
